FAERS Safety Report 7240688-3 (Version None)
Quarter: 2011Q1

REPORT INFORMATION
  Report Type: 
  Country: None (occurrence: None)
  Receive Date: 20110124
  Receipt Date: 20100309
  Transmission Date: 20110831
  Serious: No
  Sender: FDA-Public Use
  Company Number: US-KINGPHARMUSA00001-K201000287

PATIENT
  Sex: Female
  Weight: 86.168 kg

DRUGS (4)
  1. HYDROXYZINE [Concomitant]
     Indication: PRURITUS
     Dosage: UNK
  2. EPIPEN [Suspect]
     Indication: URTICARIA
     Dosage: 0.3 MG, SINGLE
     Route: 030
     Dates: start: 20100308, end: 20100308
  3. XANAX [Concomitant]
     Indication: NERVOUSNESS
     Dosage: UNK
  4. PREDNISONE [Concomitant]
     Indication: DYSPNOEA
     Dosage: UNK

REACTIONS (1)
  - DRUG INEFFECTIVE [None]
